FAERS Safety Report 4918180-8 (Version None)
Quarter: 2006Q1

REPORT INFORMATION
  Report Type: 
  Country: None (occurrence: None)
  Receive Date: 20060215
  Receipt Date: 20060203
  Transmission Date: 20060701
  Serious: Yes (Hospitalization)
  Sender: FDA-Public Use
  Company Number: SGB1-2006-00083

PATIENT
  Age: 45 Year
  Sex: Male

DRUGS (1)
  1. ANAGRELIDE HCL [Suspect]
     Indication: ESSENTIAL THROMBOCYTHAEMIA
     Dosage: 2 MG, 2X/DAY:  BID,

REACTIONS (8)
  - ALVEOLITIS ALLERGIC [None]
  - HAEMOGLOBIN DECREASED [None]
  - HYPOTENSION [None]
  - LOBAR PNEUMONIA [None]
  - LUNG CONSOLIDATION [None]
  - PLEURAL EFFUSION [None]
  - PNEUMONIA STREPTOCOCCAL [None]
  - RENAL IMPAIRMENT [None]
